FAERS Safety Report 16837499 (Version 3)
Quarter: 2019Q4

REPORT INFORMATION
  Report Type: Report from Study
  Country: US (occurrence: US)
  Receive Date: 20190923
  Receipt Date: 20191002
  Transmission Date: 20200122
  Serious: Yes (Life-Threatening, Hospitalization, Other)
  Sender: FDA-Public Use
  Company Number: US-BRISTOL-MYERS SQUIBB COMPANY-BMS-2019-089477

PATIENT
  Age: 95 Year
  Sex: Male
  Weight: 76.64 kg

DRUGS (3)
  1. BLINDED PLACEBO [Suspect]
     Active Substance: INVESTIGATIONAL PRODUCT
     Indication: CEREBROVASCULAR ACCIDENT PROPHYLAXIS
     Dosage: UNK
     Route: 065
     Dates: end: 20190908
  2. BLINDED APIXABAN [Suspect]
     Active Substance: APIXABAN
     Indication: CEREBROVASCULAR ACCIDENT PROPHYLAXIS
     Dosage: UNK
     Route: 065
     Dates: end: 20190908
  3. BLINDED ASPIRIN [Suspect]
     Active Substance: ASPIRIN
     Indication: CEREBROVASCULAR ACCIDENT PROPHYLAXIS
     Dosage: UNK
     Route: 065
     Dates: end: 20190908

REACTIONS (4)
  - Haemorrhage intracranial [Recovered/Resolved with Sequelae]
  - Respiratory distress [Recovered/Resolved]
  - Acute respiratory failure [Not Recovered/Not Resolved]
  - Hypokalaemia [Recovered/Resolved with Sequelae]

NARRATIVE: CASE EVENT DATE: 20190908
